FAERS Safety Report 26147101 (Version 2)
Quarter: 2025Q4

REPORT INFORMATION
  Report Type: Report from Study
  Country: US (occurrence: US)
  Receive Date: 20251211
  Receipt Date: 20251224
  Transmission Date: 20260119
  Serious: Yes (Other)
  Sender: PFIZER
  Company Number: US-PFIZER INC-202500239998

PATIENT
  Age: 33 Year
  Sex: Female

DRUGS (4)
  1. LORBRENA [Suspect]
     Active Substance: LORLATINIB
     Indication: Non-small cell lung cancer
     Dosage: 50 MG, DAILY
     Dates: start: 202412
  2. LORBRENA [Suspect]
     Active Substance: LORLATINIB
     Dosage: 75 MG
  3. LORBRENA [Suspect]
     Active Substance: LORLATINIB
     Dosage: ALTERNATING 50MG A DAY AND 75MG A DAY
  4. LORBRENA [Suspect]
     Active Substance: LORLATINIB
     Dosage: ALTERNATING 50MG A DAY AND 75MG A DAY

REACTIONS (3)
  - Neuropathy peripheral [Recovering/Resolving]
  - Nausea [Not Recovered/Not Resolved]
  - Intentional product misuse [Not Recovered/Not Resolved]
